FAERS Safety Report 7496128-2 (Version None)
Quarter: 2011Q2

REPORT INFORMATION
  Report Type: 
  Country: None (occurrence: None)
  Receive Date: 20110523
  Receipt Date: 20110509
  Transmission Date: 20111010
  Serious: Yes (Other)
  Sender: FDA-Public Use
  Company Number: PHHY2011US39874

PATIENT
  Sex: Male

DRUGS (4)
  1. VERPAMIL HCL [Concomitant]
     Dosage: 240 MG, BID
  2. HYDROCHLOROTHIAZIDE [Concomitant]
     Dosage: 25 MG, UNK
  3. DIOVAN [Suspect]
     Dosage: 320 MG, QD
  4. TEKTURNA [Suspect]
     Dosage: 150 MG, QD

REACTIONS (1)
  - SINUS DISORDER [None]
